FAERS Safety Report 7468155-2 (Version None)
Quarter: 2011Q2

REPORT INFORMATION
  Report Type: 
  Country: None (occurrence: None)
  Receive Date: 20110509
  Receipt Date: 20110331
  Transmission Date: 20111010
  Serious: No
  Sender: FDA-Public Use
  Company Number: US-ALEXION-A201100455

PATIENT
  Sex: Male
  Weight: 59.4 kg

DRUGS (6)
  1. PREDNISONE [Concomitant]
  2. CELL CEPT [Concomitant]
     Indication: RENAL TRANSPLANT
     Dosage: UNK
     Dates: start: 20101101
  3. SOLIRIS [Suspect]
     Dosage: 600 MG, SINGLE
     Route: 042
     Dates: start: 20101128, end: 20101128
  4. PROGRAF [Concomitant]
     Indication: RENAL TRANSPLANT
     Dosage: UNK
     Dates: start: 20101101
  5. SOLIRIS [Suspect]
     Indication: RENAL TRANSPLANT
     Dosage: 1200 MG, SINGLE
     Route: 042
     Dates: start: 20101127, end: 20101127
  6. ASPIRIN [Concomitant]

REACTIONS (1)
  - FLUID OVERLOAD [None]
